FAERS Safety Report 13746220 (Version 1)
Quarter: 2017Q3

REPORT INFORMATION
  Report Type: Spontaneous
  Country: PT (occurrence: PT)
  Receive Date: 20170712
  Receipt Date: 20170712
  Transmission Date: 20171127
  Serious: Yes (Life-Threatening)
  Sender: FDA-Public Use
  Company Number: PT-ROCHE-1961404

PATIENT
  Age: 62 Year
  Sex: Male

DRUGS (1)
  1. ACTILYSE [Suspect]
     Active Substance: ALTEPLASE
     Indication: ISCHAEMIC STROKE
     Route: 042

REACTIONS (6)
  - Cerebral haemorrhage [Unknown]
  - Ischaemic cerebral infarction [Unknown]
  - Adrenal insufficiency [Unknown]
  - Brain abscess [Unknown]
  - Oedema [Unknown]
  - Tongue oedema [Recovered/Resolved]
